FAERS Safety Report 20625782 (Version 1)
Quarter: 2022Q1

REPORT INFORMATION
  Report Type: Other
  Country: IN (occurrence: None)
  Receive Date: 20220323
  Receipt Date: 20220323
  Transmission Date: 20220423
  Serious: Yes (Other)
  Sender: FDA-Public Use
  Company Number: IN-Saptalis Pharmaceuticals,LLC-000197

PATIENT
  Age: 40 Year
  Sex: Male

DRUGS (2)
  1. CLOBETASOL PROPIONATE [Suspect]
     Active Substance: CLOBETASOL PROPIONATE
     Indication: Skin lesion
     Dosage: 0.05% CREAM
     Route: 061
  2. CLOBETASOL PROPIONATE [Suspect]
     Active Substance: CLOBETASOL PROPIONATE
     Indication: Pruritus
     Dosage: 0.05% CREAM
     Route: 061

REACTIONS (2)
  - Dermatosis [Recovered/Resolved]
  - Drug abuse [Unknown]
